FAERS Safety Report 16082287 (Version 5)
Quarter: 2020Q3

REPORT INFORMATION
  Report Type: Spontaneous
  Country: CA (occurrence: CA)
  Receive Date: 20190318
  Receipt Date: 20200918
  Transmission Date: 20201102
  Serious: Yes (Death, Hospitalization, Other)
  Sender: FDA-Public Use
  Company Number: CA-009507513-1903CAN006528

PATIENT
  Age: 50 Year
  Sex: Female
  Weight: 73 kg

DRUGS (6)
  1. AVASTIN [Suspect]
     Active Substance: BEVACIZUMAB
     Dosage: 1000 MILLIGRAM
     Route: 042
  2. DILATIN [Concomitant]
     Indication: PRODUCT USED FOR UNKNOWN INDICATION
     Dosage: UNK
     Route: 065
  3. TEMODAL [Suspect]
     Active Substance: TEMOZOLOMIDE
     Indication: PRODUCT USED FOR UNKNOWN INDICATION
     Dosage: FORMULATION: NOT SPECIFIED
     Route: 065
  4. FENTANYL. [Concomitant]
     Active Substance: FENTANYL
     Indication: PRODUCT USED FOR UNKNOWN INDICATION
     Dosage: UNK
     Route: 065
  5. AVASTIN [Suspect]
     Active Substance: BEVACIZUMAB
     Indication: GLIOBLASTOMA
     Dosage: 1100 MILLIGRAM, SOLUTION INTRAVENOUS
     Route: 042
  6. AVASTIN [Suspect]
     Active Substance: BEVACIZUMAB
     Indication: BRAIN NEOPLASM MALIGNANT
     Dosage: 1000 MILLIGRAM, FORMULATION: HERBAL TEA
     Route: 042

REACTIONS (12)
  - Nausea [Fatal]
  - Weight increased [Fatal]
  - Fatigue [Fatal]
  - Death [Fatal]
  - Headache [Fatal]
  - Seizure [Fatal]
  - Tongue ulceration [Fatal]
  - Asthenia [Fatal]
  - Coagulation time prolonged [Fatal]
  - Infrequent bowel movements [Fatal]
  - Blood count abnormal [Fatal]
  - Blood pressure increased [Fatal]
